FAERS Safety Report 10187876 (Version 1)
Quarter: 2014Q2

REPORT INFORMATION
  Report Type: Spontaneous
  Country: US (occurrence: US)
  Receive Date: 20140522
  Receipt Date: 20140522
  Transmission Date: 20141212
  Serious: No
  Sender: FDA-Public Use
  Company Number: US-SA-2013SA107762

PATIENT
  Age: 69 Year
  Sex: Male

DRUGS (1)
  1. LANTUS [Suspect]
     Indication: TYPE 2 DIABETES MELLITUS
     Dosage: PRODUCT STARTED 4-5 YEARS AGO. DOSE : UPTO 70 UNITS NOW.
     Route: 058

REACTIONS (2)
  - Unevaluable event [Not Recovered/Not Resolved]
  - Drug dose omission [Unknown]
